FAERS Safety Report 6772138-5 (Version None)
Quarter: 2010Q2

REPORT INFORMATION
  Report Type: 
  Country: None (occurrence: None)
  Receive Date: 20100616
  Receipt Date: 20100608
  Transmission Date: 20101027
  Serious: Yes (Hospitalization)
  Sender: FDA-Public Use
  Company Number: B0660729A

PATIENT
  Sex: Male

DRUGS (4)
  1. AUGMENTIN '125' [Suspect]
     Indication: DENTAL OPERATION
     Dosage: 3G PER DAY
     Route: 048
     Dates: start: 20100506, end: 20100513
  2. SELES BETA [Concomitant]
  3. NEOLOTAN [Concomitant]
  4. ASPIRIN [Concomitant]

REACTIONS (1)
  - PURPURA [None]
